FAERS Safety Report 6426413-4 (Version None)
Quarter: 2009Q4

REPORT INFORMATION
  Report Type: 
  Country: None (occurrence: None)
  Receive Date: 20091030
  Receipt Date: 20091016
  Transmission Date: 20100525
  Serious: Yes (Hospitalization, Other)
  Sender: FDA-Public Use
  Company Number: CLOF-1000691

PATIENT
  Age: 3 Year
  Sex: Female

DRUGS (5)
  1. CLOLAR [Suspect]
     Indication: ACUTE LYMPHOCYTIC LEUKAEMIA
     Dosage: 40 MG/M2, QDX5, INTRAVENOUS
     Route: 042
     Dates: start: 20090220, end: 20090224
  2. ETOPOSIDE [Suspect]
     Indication: ACUTE LYMPHOCYTIC LEUKAEMIA
     Dosage: 100 MG/M2, QDX5
     Dates: start: 20090220, end: 20090224
  3. METHOTREXATE (METHOTREXATE SODIUM) [Concomitant]
  4. HYDROCORTONE [Concomitant]
  5. CYTARABINE [Concomitant]

REACTIONS (21)
  - ANAL ULCER [None]
  - ANORECTAL INFECTION [None]
  - CAECITIS [None]
  - CYTOMEGALOVIRUS VIRAEMIA [None]
  - DEVICE RELATED INFECTION [None]
  - ENTEROCOCCAL INFECTION [None]
  - HYPOKALAEMIA [None]
  - HYPOTENSION [None]
  - INFUSION SITE ERYTHEMA [None]
  - KIDNEY ENLARGEMENT [None]
  - KLEBSIELLA SEPSIS [None]
  - MUCOSAL INFLAMMATION [None]
  - MULTI-ORGAN FAILURE [None]
  - NEUTROPENIC COLITIS [None]
  - PANCYTOPENIA [None]
  - PATHOGEN RESISTANCE [None]
  - PNEUMONIA KLEBSIELLA [None]
  - PSEUDOMONAS INFECTION [None]
  - RASH [None]
  - STAPHYLOCOCCAL SEPSIS [None]
  - TREATMENT FAILURE [None]
